FAERS Safety Report 13686433 (Version 1)
Quarter: 2017Q2

REPORT INFORMATION
  Report Type: Spontaneous
  Country: US (occurrence: US)
  Receive Date: 20170623
  Receipt Date: 20170623
  Transmission Date: 20170830
  Serious: Yes (Other)
  Sender: FDA-Public Use
  Company Number: US-ROCHE-1162555

PATIENT
  Age: 27 Year
  Sex: Female

DRUGS (5)
  1. MYCOPHENOLATE MOFETIL. [Suspect]
     Active Substance: MYCOPHENOLATE MOFETIL
     Dosage: TAPERED DOSE
     Route: 048
  2. MYCOPHENOLATE MOFETIL. [Suspect]
     Active Substance: MYCOPHENOLATE MOFETIL
     Indication: GRAFT VERSUS HOST DISEASE
     Route: 048
  3. MYCOPHENOLATE MOFETIL. [Suspect]
     Active Substance: MYCOPHENOLATE MOFETIL
     Route: 048
  4. RITUXIMAB [Concomitant]
     Active Substance: RITUXIMAB
     Dosage: FOR 4 WEEKS
     Route: 042
  5. RITUXIMAB [Concomitant]
     Active Substance: RITUXIMAB
     Route: 042

REACTIONS (2)
  - Post transplant lymphoproliferative disorder [Recovered/Resolved]
  - Epstein-Barr virus infection [Recovered/Resolved]
